FAERS Safety Report 10087118 (Version 1)
Quarter: 2014Q2

REPORT INFORMATION
  Report Type: Spontaneous
  Country: US (occurrence: US)
  Receive Date: 20140418
  Receipt Date: 20140418
  Transmission Date: 20141212
  Serious: No
  Sender: FDA-Public Use
  Company Number: US-TARO-2013P1006318

PATIENT
  Age: 66 Year
  Sex: Female
  Weight: 86.18 kg

DRUGS (9)
  1. ETODOLAC EXTENDED RELEASE TABLETS 400 MG [Suspect]
     Route: 048
     Dates: start: 20130509, end: 20130517
  2. LOVASTATIN [Concomitant]
     Dates: start: 2007
  3. HYDROCHLOROTHIAZIDE [Concomitant]
     Dates: start: 2007
  4. LISINOPRIL [Concomitant]
     Dates: start: 2007
  5. CITALOPRAM [Concomitant]
     Dates: start: 2007
  6. GLUCOSAMINE CHONDROITIN MSN 1500/1200/900 [Concomitant]
     Dates: start: 2007
  7. FISH OIL [Concomitant]
     Dates: start: 2007
  8. CALCIUM 600 PLUS D [Concomitant]
     Dates: start: 2007
  9. ALEVE [Concomitant]
     Dates: start: 2007

REACTIONS (3)
  - Hypersensitivity [Recovering/Resolving]
  - Vomiting [Recovered/Resolved]
  - Fatigue [Not Recovered/Not Resolved]
